FAERS Safety Report 5593132-6 (Version None)
Quarter: 2008Q1

REPORT INFORMATION
  Report Type: 
  Country: None (occurrence: None)
  Receive Date: 20080114
  Receipt Date: 20080114
  Transmission Date: 20080703
  Serious: Yes (Other)
  Sender: FDA-Public Use
  Company Number: None

PATIENT
  Age: 77 Year
  Sex: Male
  Weight: 81.6475 kg

DRUGS (1)
  1. LEVAQUIN [Suspect]
     Indication: SINUSITIS
     Dosage: 30   DAILY  PO
     Route: 048
     Dates: start: 20071117, end: 20071127

REACTIONS (4)
  - INSOMNIA [None]
  - NO THERAPEUTIC RESPONSE [None]
  - PRURITUS [None]
  - TENDONITIS [None]
